FAERS Safety Report 9469716 (Version 2)
Quarter: 2013Q4

REPORT INFORMATION
  Report Type: Spontaneous
  Country: DE (occurrence: DE)
  Receive Date: 20130822
  Receipt Date: 20131016
  Transmission Date: 20140711
  Serious: Yes (Other)
  Sender: FDA-Public Use
  Company Number: PHHY2013DE090056

PATIENT
  Sex: Female

DRUGS (4)
  1. ESTRAGEST TTS [Suspect]
     Indication: URINARY INCONTINENCE
     Dosage: (TWICE PER WEEK)
     Route: 062
     Dates: start: 1999, end: 201307
  2. ESTRAGEST TTS [Suspect]
     Dosage: (ONCE A WEEK)
     Route: 062
     Dates: start: 201307, end: 20130808
  3. L-THYROXIN [Concomitant]
     Dosage: 50 MG, DAILY
     Dates: start: 1998
  4. MOVICOL [Concomitant]
     Indication: GASTROINTESTINAL MOTILITY DISORDER
     Dosage: UNK UKN, UNK

REACTIONS (2)
  - Breast cancer [Not Recovered/Not Resolved]
  - Hot flush [Recovered/Resolved]
